FAERS Safety Report 8352327-9 (Version None)
Quarter: 2012Q2

REPORT INFORMATION
  Report Type: 
  Country: None (occurrence: None)
  Receive Date: 20120511
  Receipt Date: 20120503
  Transmission Date: 20120825
  Serious: Yes (Hospitalization, Other)
  Sender: FDA-Public Use
  Company Number: US-BAYER-2012-032818

PATIENT
  Age: 20 Year
  Sex: Female
  Weight: 54.422 kg

DRUGS (4)
  1. YAZ [Suspect]
     Indication: PREMENSTRUAL SYNDROME
     Dosage: UNK
     Dates: start: 20091013, end: 20100328
  2. IBUPROFEN (ADVIL) [Concomitant]
     Indication: PAIN
     Dosage: 1 PILL, QD
  3. MULTIVITAMIN/CALCIUM SUPPLEMENT [Concomitant]
     Dosage: 1 PILL, QD
     Route: 048
     Dates: start: 20100201
  4. LEXAPRO [Concomitant]
     Indication: ANXIETY
     Dosage: 10 MG, UNK
     Dates: start: 20090101, end: 20111201

REACTIONS (6)
  - ATELECTASIS [None]
  - PULMONARY EMBOLISM [None]
  - DEEP VEIN THROMBOSIS [None]
  - PLEURITIC PAIN [None]
  - PAIN [None]
  - INJURY [None]
